FAERS Safety Report 14121983 (Version 2)
Quarter: 2017Q4

REPORT INFORMATION
  Report Type: Spontaneous
  Country: US (occurrence: US)
  Receive Date: 20171024
  Receipt Date: 20171106
  Transmission Date: 20180321
  Serious: Yes (Other)
  Sender: FDA-Public Use
  Company Number: US-CELGENEUS-USA-20171006866

PATIENT
  Age: 78 Year
  Sex: Male
  Weight: 115.8 kg

DRUGS (15)
  1. OXYBUTYNIN. [Concomitant]
     Active Substance: OXYBUTYNIN CHLORIDE
     Indication: RELAXATION THERAPY
     Route: 065
     Dates: start: 2007
  2. CALCIUM [Concomitant]
     Active Substance: CALCIUM
     Indication: SUPPLEMENTATION THERAPY
     Route: 065
     Dates: start: 2007
  3. LOSARTAN. [Concomitant]
     Active Substance: LOSARTAN
     Indication: HYPERTENSION
     Route: 065
  4. LOSARTAN. [Concomitant]
     Active Substance: LOSARTAN
     Indication: HEART RATE IRREGULAR
  5. CALCITRIOL WITH MAGNESIUM [Concomitant]
     Indication: SUPPLEMENTATION THERAPY
     Route: 065
     Dates: start: 2007
  6. CHONDRIOTIN [Concomitant]
     Indication: SUPPLEMENTATION THERAPY
     Route: 065
     Dates: start: 2007
  7. OTEZLA [Suspect]
     Active Substance: APREMILAST
     Dosage: 60 MILLIGRAM
     Route: 048
     Dates: start: 20171011
  8. OTEZLA [Suspect]
     Active Substance: APREMILAST
     Dosage: 30 MILLIGRAM
     Route: 048
     Dates: start: 20171021
  9. VITAMIN D3 [Concomitant]
     Active Substance: CHOLECALCIFEROL
     Indication: SUPPLEMENTATION THERAPY
     Route: 065
     Dates: start: 2007
  10. OTEZLA [Suspect]
     Active Substance: APREMILAST
     Indication: PSORIATIC ARTHROPATHY
     Dosage: 60 MILLIGRAM
     Route: 048
     Dates: start: 20170907
  11. METOPROLOL TARTRATE. [Concomitant]
     Active Substance: METOPROLOL TARTRATE
     Indication: HYPERTENSION
     Route: 065
  12. METOPROLOL TARTRATE. [Concomitant]
     Active Substance: METOPROLOL TARTRATE
     Indication: HEART RATE IRREGULAR
  13. GLUCOSAMINE [Concomitant]
     Active Substance: GLUCOSAMINE
     Indication: SUPPLEMENTATION THERAPY
     Route: 065
     Dates: start: 2007
  14. BABY ASPIRIN [Concomitant]
     Active Substance: ASPIRIN
     Indication: HEART RATE IRREGULAR
     Route: 065
     Dates: start: 2007
  15. MELOXICAM. [Concomitant]
     Active Substance: MELOXICAM
     Indication: PAIN
     Route: 065
     Dates: start: 2014

REACTIONS (2)
  - Diarrhoea [Recovering/Resolving]
  - Headache [Recovered/Resolved]

NARRATIVE: CASE EVENT DATE: 20170910
